FAERS Safety Report 12302689 (Version 1)
Quarter: 2016Q2

REPORT INFORMATION
  Report Type: Spontaneous
  Country: US (occurrence: US)
  Receive Date: 20160425
  Receipt Date: 20160425
  Transmission Date: 20160815
  Serious: Yes (Other)
  Sender: FDA-Public Use
  Company Number: US-SA-2016SA042550

PATIENT
  Age: 57 Year
  Sex: Female

DRUGS (1)
  1. ENOXAPARIN SODIUM - WINTHROP [Suspect]
     Active Substance: ENOXAPARIN SODIUM
     Indication: THROMBOSIS PROPHYLAXIS
     Dosage: STARTED 2 YEARS AGO
     Route: 051

REACTIONS (6)
  - Product closure removal difficult [Unknown]
  - Renal vascular thrombosis [None]
  - Syringe issue [None]
  - Vascular stent thrombosis [Unknown]
  - Incorrect dose administered by device [None]
  - Drug administered at inappropriate site [None]
